FAERS Safety Report 11509414 (Version 1)
Quarter: 2015Q3

REPORT INFORMATION
  Report Type: Spontaneous
  Country: US (occurrence: US)
  Receive Date: 20150915
  Receipt Date: 20150915
  Transmission Date: 20151125
  Serious: No
  Sender: FDA-Public Use
  Company Number: US-ASTRAZENECA-2015SE86279

PATIENT
  Sex: Female

DRUGS (3)
  1. RHINOCORT AQUA [Suspect]
     Active Substance: BUDESONIDE
     Route: 045
  2. RHINOCORT AQUA [Suspect]
     Active Substance: BUDESONIDE
     Dosage: BUDESONIDE GENERIC
     Route: 045
  3. CLARITIN [Concomitant]
     Active Substance: LORATADINE
     Route: 048

REACTIONS (3)
  - Hypersensitivity [Unknown]
  - Product quality issue [Unknown]
  - Burning sensation [Unknown]
